FAERS Safety Report 11092830 (Version 1)
Quarter: 2015Q2

REPORT INFORMATION
  Report Type: Spontaneous
  Country: FR (occurrence: None)
  Receive Date: 20150504
  Receipt Date: 20150504
  Transmission Date: 20150821
  Serious: Yes (Other)
  Sender: FDA-Public Use
  Company Number: 2013SA038588

PATIENT
  Age: 57 Year
  Sex: Female

DRUGS (5)
  1. PREDNISONE. [Suspect]
     Active Substance: PREDNISONE
     Indication: SUBACUTE CUTANEOUS LUPUS ERYTHEMATOSUS
  2. OMEPRAZOLE. [Suspect]
     Active Substance: OMEPRAZOLE
  3. HYDROXYCHLOROQUINE [Suspect]
     Active Substance: HYDROXYCHLOROQUINE
     Indication: SUBACUTE CUTANEOUS LUPUS ERYTHEMATOSUS
  4. MYCOPHENOLATE MOFETIL. [Suspect]
     Active Substance: MYCOPHENOLATE MOFETIL
     Indication: SUBACUTE CUTANEOUS LUPUS ERYTHEMATOSUS
  5. METHOTREXATE [Suspect]
     Active Substance: METHOTREXATE
     Indication: SUBACUTE CUTANEOUS LUPUS ERYTHEMATOSUS

REACTIONS (11)
  - Pericarditis [None]
  - Subacute cutaneous lupus erythematosus [None]
  - Bicytopenia [None]
  - Hypergammaglobulinaemia [None]
  - Lymphadenopathy [None]
  - Antinuclear antibody positive [None]
  - Skin lesion [None]
  - Dermatitis psoriasiform [None]
  - DNA antibody [None]
  - Scar [None]
  - Drug ineffective [None]
